FAERS Safety Report 12638773 (Version 1)
Quarter: 2016Q3

REPORT INFORMATION
  Report Type: Spontaneous
  Country: US (occurrence: US)
  Receive Date: 20160809
  Receipt Date: 20160809
  Transmission Date: 20161109
  Serious: No
  Sender: FDA-Public Use
  Company Number: GXBR2016US002160

PATIENT
  Age: 3 Year
  Sex: Female
  Weight: 13.61 kg

DRUGS (4)
  1. TRIAMCINOLONE ACETONIDE. [Suspect]
     Active Substance: TRIAMCINOLONE ACETONIDE
     Indication: RASH GENERALISED
     Dosage: 0.1 %, UNK
     Route: 061
  2. SINUPRET [Concomitant]
     Active Substance: HERBALS
     Dosage: 3.5 ML, TID
  3. SODIUM CHLORIDE. [Concomitant]
     Active Substance: SODIUM CHLORIDE
     Dosage: UNK DF, TID
     Route: 045
  4. LEVOCABASTINE [Concomitant]
     Active Substance: LEVOCABASTINE
     Dosage: 2 DF, BID
     Route: 045

REACTIONS (1)
  - Discomfort [Recovering/Resolving]
